FAERS Safety Report 12723238 (Version 1)
Quarter: 2016Q3

REPORT INFORMATION
  Report Type: Other
  Country: IT (occurrence: IT)
  Receive Date: 20160908
  Receipt Date: 20160908
  Transmission Date: 20161109
  Serious: Yes (Other)
  Sender: FDA-Public Use
  Company Number: IT-APOTEX-2016AP011031

PATIENT
  Age: 63 Year
  Sex: Female
  Weight: 62 kg

DRUGS (6)
  1. ATORVASTATINA DOC GENERICI COMPRESSE RIVESTITE CON FILM [Suspect]
     Active Substance: ATORVASTATIN
     Indication: TYPE IIA HYPERLIPIDAEMIA
     Route: 048
  2. SIMVASTATINA DOC GENERICI [Suspect]
     Active Substance: SIMVASTATIN
     Indication: TYPE IIA HYPERLIPIDAEMIA
     Route: 048
  3. ROSUVASTATIN. [Suspect]
     Active Substance: ROSUVASTATIN
     Indication: TYPE IIA HYPERLIPIDAEMIA
     Route: 048
  4. ASPIRIN                            /00002701/ [Concomitant]
     Active Substance: ASPIRIN
     Indication: HYPERTENSION
     Route: 065
  5. PRAVASTATINA DOC GENERICI [Suspect]
     Active Substance: PRAVASTATIN SODIUM
     Indication: TYPE IIA HYPERLIPIDAEMIA
     Route: 048
  6. VALSARTAN + HIDROCLOROTIAZIDA [Concomitant]
     Active Substance: HYDROCHLOROTHIAZIDE\VALSARTAN
     Indication: HYPERTENSION
     Route: 065

REACTIONS (3)
  - Pain in extremity [Recovered/Resolved]
  - Asthenia [Recovered/Resolved]
  - Myopathy [Recovered/Resolved]

NARRATIVE: CASE EVENT DATE: 20121217
